FAERS Safety Report 24761292 (Version 1)
Quarter: 2024Q4

REPORT INFORMATION
  Report Type: Spontaneous
  Country: CA (occurrence: CA)
  Receive Date: 20241220
  Receipt Date: 20241220
  Transmission Date: 20250115
  Serious: Yes (Other)
  Sender: TEVA
  Company Number: CA-TEVA-VS-3276777

PATIENT

DRUGS (1)
  1. PREDNISOLONE [Suspect]
     Active Substance: PREDNISOLONE
     Indication: Cataract
     Route: 065

REACTIONS (6)
  - Musculoskeletal stiffness [Unknown]
  - Intraocular pressure increased [Unknown]
  - Cataract subcapsular [Unknown]
  - Visual field defect [Unknown]
  - Eye infection [Unknown]
  - Optic nerve injury [Unknown]
